FAERS Safety Report 22049053 (Version 5)
Quarter: 2023Q2

REPORT INFORMATION
  Report Type: Spontaneous
  Country: US (occurrence: US)
  Receive Date: 20230301
  Receipt Date: 20230530
  Transmission Date: 20230722
  Serious: Yes (Other)
  Sender: FDA-Public Use
  Company Number: US-PFIZER INC-PV202300011277

PATIENT
  Age: 76 Year
  Sex: Female

DRUGS (4)
  1. IBRANCE [Suspect]
     Active Substance: PALBOCICLIB
     Dosage: 125 MG
  2. IBRANCE [Suspect]
     Active Substance: PALBOCICLIB
     Dosage: 100 MG
  3. IBRANCE [Suspect]
     Active Substance: PALBOCICLIB
     Dosage: 75 MG
  4. ESTROGENS [Concomitant]
     Active Substance: ESTROGENS
     Dosage: UNK

REACTIONS (12)
  - Osteogenesis imperfecta [Unknown]
  - White blood cell count decreased [Not Recovered/Not Resolved]
  - Full blood count decreased [Recovering/Resolving]
  - Malaise [Unknown]
  - Immune system disorder [Unknown]
  - Feeling abnormal [Unknown]
  - Asthenia [Unknown]
  - Chest discomfort [Unknown]
  - Bone disorder [Unknown]
  - Gait disturbance [Unknown]
  - Infusion related reaction [Unknown]
  - Influenza like illness [Unknown]
